FAERS Safety Report 7040377-4 (Version None)
Quarter: 2010Q4

REPORT INFORMATION
  Report Type: 
  Country: None (occurrence: None)
  Receive Date: 20101008
  Receipt Date: 20101008
  Transmission Date: 20110411
  Serious: Yes (Other)
  Sender: FDA-Public Use
  Company Number: None

PATIENT
  Sex: Female

DRUGS (1)
  1. AMPYRA [Suspect]
     Dosage: AMPYRA 10MG TABLET TAKE 1 TABLET BY MOUTH TWICE A DAY
     Route: 048

REACTIONS (4)
  - ASTHENIA [None]
  - BACK PAIN [None]
  - HYPOAESTHESIA [None]
  - INSOMNIA [None]
